FAERS Safety Report 7443202-2 (Version None)
Quarter: 2011Q2

REPORT INFORMATION
  Report Type: 
  Country: None (occurrence: None)
  Receive Date: 20110428
  Receipt Date: 20110419
  Transmission Date: 20111010
  Serious: Yes (Other)
  Sender: FDA-Public Use
  Company Number: B0711752A

PATIENT
  Sex: Male

DRUGS (4)
  1. PAXIL [Suspect]
     Indication: SOCIAL PHOBIA
     Dosage: 10MG PER DAY
     Route: 048
     Dates: start: 20110328, end: 20110402
  2. RIVOTRIL [Concomitant]
     Dosage: .5MG PER DAY
     Route: 048
     Dates: start: 20110402
  3. DOGMATYL [Concomitant]
     Indication: DEPRESSIVE SYMPTOM
     Dosage: 100MG PER DAY
     Route: 048
     Dates: start: 20110402
  4. SOLANAX [Suspect]
     Indication: SOCIAL PHOBIA
     Dosage: 1.6MG PER DAY
     Route: 048
     Dates: start: 20110328

REACTIONS (11)
  - TONIC CONVULSION [None]
  - GAZE PALSY [None]
  - NAUSEA [None]
  - HEADACHE [None]
  - TREMOR [None]
  - PALLOR [None]
  - LOSS OF CONSCIOUSNESS [None]
  - CONVULSION [None]
  - DECREASED APPETITE [None]
  - DIZZINESS [None]
  - INSOMNIA [None]
